FAERS Safety Report 6882417-9 (Version None)
Quarter: 2010Q3

REPORT INFORMATION
  Report Type: 
  Country: None (occurrence: None)
  Receive Date: 20100727
  Receipt Date: 20100720
  Transmission Date: 20110219
  Serious: Yes (Other)
  Sender: FDA-Public Use
  Company Number: 1000015233

PATIENT
  Sex: Female

DRUGS (2)
  1. LEXAPRO [Suspect]
     Dosage: ORAL
     Route: 048
  2. ZYPREXA [Suspect]

REACTIONS (2)
  - HOMICIDE [None]
  - SUICIDE ATTEMPT [None]
